FAERS Safety Report 24082827 (Version 1)
Quarter: 2024Q3

REPORT INFORMATION
  Report Type: Spontaneous
  Country: US (occurrence: US)
  Receive Date: 20240712
  Receipt Date: 20240712
  Transmission Date: 20241017
  Serious: Yes (Other)
  Sender: TAKEDA
  Company Number: US-TAKEDA-2024TUS070133

PATIENT
  Sex: Male

DRUGS (4)
  1. GATTEX [Suspect]
     Active Substance: TEDUGLUTIDE\WATER
     Indication: Graft versus host disease
     Dosage: 0.025 MILLIGRAM/KILOGRAM
     Route: 065
  2. GATTEX [Suspect]
     Active Substance: TEDUGLUTIDE\WATER
     Indication: Graft versus host disease
     Dosage: 0.025 MILLIGRAM/KILOGRAM
     Route: 065
  3. GATTEX [Suspect]
     Active Substance: TEDUGLUTIDE\WATER
     Indication: Graft versus host disease
     Dosage: 0.025 MILLIGRAM/KILOGRAM
     Route: 065
  4. GATTEX [Suspect]
     Active Substance: TEDUGLUTIDE\WATER
     Indication: Graft versus host disease
     Dosage: 0.025 MILLIGRAM/KILOGRAM
     Route: 065

REACTIONS (4)
  - Encephalopathy [Unknown]
  - Gastrointestinal haemorrhage [Unknown]
  - Off label use [Unknown]
  - Neurological symptom [Not Recovered/Not Resolved]
